FAERS Safety Report 18033296 (Version 2)
Quarter: 2021Q1

REPORT INFORMATION
  Report Type: Report from Study
  Country: US (occurrence: US)
  Receive Date: 20200716
  Receipt Date: 20210215
  Transmission Date: 20210419
  Serious: No
  Sender: FDA-Public Use
  Company Number: NVSC2020US197334

PATIENT
  Age: 55 Year
  Sex: Female

DRUGS (2)
  1. COSENTYX [Suspect]
     Active Substance: SECUKINUMAB
     Dosage: 300 MG, Q4W
     Route: 058
  2. COSENTYX [Suspect]
     Active Substance: SECUKINUMAB
     Indication: ANKYLOSING SPONDYLITIS
     Dosage: 150 MG, QW
     Route: 058

REACTIONS (9)
  - Pain [Recovering/Resolving]
  - Sinusitis [Recovering/Resolving]
  - Feeling abnormal [Recovering/Resolving]
  - Gastrointestinal inflammation [Recovering/Resolving]
  - Bronchitis [Recovering/Resolving]
  - Gastroenteritis [Recovering/Resolving]
  - Inappropriate schedule of product administration [Recovering/Resolving]
  - Swelling [Recovering/Resolving]
  - Inflammation [Recovering/Resolving]

NARRATIVE: CASE EVENT DATE: 20200612
